FAERS Safety Report 15350161 (Version 1)
Quarter: 2018Q3

REPORT INFORMATION
  Report Type: Spontaneous
  Country: JP (occurrence: JP)
  Receive Date: 20180905
  Receipt Date: 20180905
  Transmission Date: 20181010
  Serious: Yes (Other)
  Sender: FDA-Public Use
  Company Number: JP-INGENUS PHARMACEUTICALS, LLC-INF201808-000886

PATIENT
  Age: 64 Year
  Sex: Male

DRUGS (2)
  1. CARBOPLATIN. [Suspect]
     Active Substance: CARBOPLATIN
  2. PACLITAXEL. [Suspect]
     Active Substance: PACLITAXEL

REACTIONS (3)
  - Nausea [Unknown]
  - Gastritis bacterial [Unknown]
  - Haematemesis [Unknown]
